FAERS Safety Report 14959344 (Version 1)
Quarter: 2018Q2

REPORT INFORMATION
  Report Type: Report from Study
  Country: CA (occurrence: CA)
  Receive Date: 20180531
  Receipt Date: 20180531
  Transmission Date: 20180711
  Serious: Yes (Hospitalization, Other)
  Sender: FDA-Public Use
  Company Number: CA-JNJFOC-20180422552

PATIENT
  Age: 73 Year
  Sex: Female
  Weight: 63.6 kg

DRUGS (1)
  1. IBRUTINIB [Suspect]
     Active Substance: IBRUTINIB
     Indication: CHRONIC LYMPHOCYTIC LEUKAEMIA
     Dosage: 420 MG, QD
     Route: 048
     Dates: start: 20150429

REACTIONS (8)
  - Atrial tachycardia [Recovering/Resolving]
  - Hypertension [Recovering/Resolving]
  - Blood bilirubin increased [Recovered/Resolved]
  - Abdominal pain [Recovering/Resolving]
  - Nausea [Recovering/Resolving]
  - Blood creatinine increased [Recovering/Resolving]
  - Cholecystitis [Recovering/Resolving]
  - Vomiting [Recovered/Resolved]

NARRATIVE: CASE EVENT DATE: 20180329
